FAERS Safety Report 4731968-1 (Version None)
Quarter: 2005Q3

REPORT INFORMATION
  Report Type: 
  Country: None (occurrence: None)
  Receive Date: 20050725
  Receipt Date: 20041103
  Transmission Date: 20060218
  Serious: Yes (Hospitalization)
  Sender: FDA-Public Use
  Company Number: WAES 0411USA00604

PATIENT
  Age: 68 Year
  Sex: Female

DRUGS (4)
  1. VIOXX [Suspect]
     Indication: MIGRAINE
     Dosage: PO
     Route: 048
     Dates: start: 20040903, end: 20040903
  2. CLONOPIN [Concomitant]
  3. MAXALT [Concomitant]
  4. ZESTRIL [Concomitant]

REACTIONS (1)
  - BLOOD PRESSURE INCREASED [None]
